FAERS Safety Report 19880106 (Version 1)
Quarter: 2021Q3

REPORT INFORMATION
  Report Type: Spontaneous
  Country: US (occurrence: US)
  Receive Date: 20210924
  Receipt Date: 20210924
  Transmission Date: 20211014
  Serious: Yes (Other)
  Sender: FDA-Public Use
  Company Number: US-MYLANLABS-2021M1066163

PATIENT
  Age: 40 Year
  Sex: Female

DRUGS (2)
  1. ADALIMUMAB [Suspect]
     Active Substance: ADALIMUMAB
     Indication: GUTTATE PSORIASIS
     Dosage: UNK
     Route: 065
  2. SECUKINUMAB. [Concomitant]
     Active Substance: SECUKINUMAB
     Indication: GUTTATE PSORIASIS
     Dosage: 300 MILLIGRAM, AT WEEKS 0, 1, 2, 3, 4, 8, 12 AND 16
     Route: 058

REACTIONS (1)
  - Drug ineffective [Unknown]
